FAERS Safety Report 24924372 (Version 5)
Quarter: 2025Q2

REPORT INFORMATION
  Report Type: Spontaneous
  Country: US (occurrence: US)
  Receive Date: 20250204
  Receipt Date: 20250408
  Transmission Date: 20250716
  Serious: No
  Sender: GLAUKOS
  Company Number: US-GLK-000607

PATIENT
  Age: 30 Year
  Sex: Male

DRUGS (2)
  1. PHOTREXA VISCOUS [Suspect]
     Active Substance: RIBOFLAVIN 5^-PHOSPHATE SODIUM
     Indication: Keratoconus
     Route: 047
     Dates: start: 20250107, end: 20250107
  2. PHOTREXA [Suspect]
     Active Substance: RIBOFLAVIN 5^-PHOSPHATE SODIUM
     Indication: Keratoconus
     Route: 047
     Dates: start: 20250107, end: 20250107

REACTIONS (4)
  - Corneal deposits [Recovering/Resolving]
  - Corneal scar [Recovering/Resolving]
  - Corneal opacity [Recovering/Resolving]
  - Corneal epithelium defect [Recovering/Resolving]

NARRATIVE: CASE EVENT DATE: 20250107
